FAERS Safety Report 9570367 (Version 1)
Quarter: 2013Q3

REPORT INFORMATION
  Report Type: Spontaneous
  Country: US (occurrence: US)
  Receive Date: 20130930
  Receipt Date: 20130930
  Transmission Date: 20140515
  Serious: No
  Sender: FDA-Public Use
  Company Number: US-AMGEN-USASP2013064059

PATIENT
  Age: 46 Year
  Sex: Female
  Weight: 53.52 kg

DRUGS (10)
  1. ENBREL [Suspect]
     Indication: RHEUMATOID ARTHRITIS
     Dosage: 50 MG, ONCE A WEEK
     Route: 058
     Dates: start: 20130801
  2. TOPAMAX [Concomitant]
     Dosage: 100 MG, UNK
  3. MEGESTROL [Concomitant]
     Dosage: 40 MG, UNK
  4. SYNTHROID [Concomitant]
     Dosage: 75 MCG, UNK
  5. ALLEGRA [Concomitant]
     Dosage: 30 MG, UNK
  6. LISINOPRIL [Concomitant]
     Dosage: 10 MG, UNK
  7. TUMS                               /00193601/ [Concomitant]
     Dosage: 500 MG, UNK
  8. LIDODERM [Concomitant]
     Dosage: 5 %, UNK
  9. VITAMIN D                          /00107901/ [Concomitant]
     Dosage: 1000 UNIT, UNK
  10. DEXILANT [Concomitant]
     Dosage: 60 MG, UNK

REACTIONS (4)
  - Headache [Not Recovered/Not Resolved]
  - Pain [Not Recovered/Not Resolved]
  - Injection site pruritus [Recovered/Resolved]
  - Injection site erythema [Recovered/Resolved]
